FAERS Safety Report 15648301 (Version 3)
Quarter: 2018Q4

REPORT INFORMATION
  Report Type: Spontaneous
  Country: US (occurrence: US)
  Receive Date: 20181122
  Receipt Date: 20181226
  Transmission Date: 20190205
  Serious: No
  Sender: FDA-Public Use
  Company Number: US-PFIZER INC-2018474096

PATIENT
  Age: 70 Year
  Sex: Female
  Weight: 45.36 kg

DRUGS (2)
  1. ESTRING [Suspect]
     Active Substance: ESTRADIOL
     Indication: VULVOVAGINAL DRYNESS
     Dosage: 2MG RING VAGINALLY EVERY THREE MONTHS
     Route: 067
     Dates: start: 2017
  2. ESTRING [Suspect]
     Active Substance: ESTRADIOL
     Indication: ATROPHIC VULVOVAGINITIS

REACTIONS (4)
  - Drug ineffective [Unknown]
  - Urinary tract infection [Unknown]
  - Vulvovaginal pain [Recovered/Resolved]
  - Product complaint [Unknown]
